FAERS Safety Report 4640141-7 (Version None)
Quarter: 2005Q2

REPORT INFORMATION
  Report Type: 
  Country: None (occurrence: None)
  Receive Date: 20050415
  Receipt Date: 20050415
  Transmission Date: 20051028
  Serious: No
  Sender: FDA-Public Use
  Company Number: None

PATIENT
  Sex: Male
  Weight: 73.4 kg

DRUGS (3)
  1. PACLITAXEL [Suspect]
     Dosage: 225 MG/M2 IV OVER 3 HOURS ON DAY 1 EVERY 21 DAYS X 2
     Route: 042
     Dates: start: 20050405
  2. CARBOPLATIN [Suspect]
     Dosage: AUC = 6 IV OVER 15-30 MIN ON DAY 1 EVERY 21 DAYS X 2
     Route: 042
  3. XRT [Suspect]
     Dosage: 60 GY OVER 6 WKS BEGINNING BETWEEN DAYS 43-50

REACTIONS (8)
  - ARTHRALGIA [None]
  - ASTHENIA [None]
  - DEHYDRATION [None]
  - FLUID INTAKE REDUCED [None]
  - HYPOTENSION [None]
  - MYALGIA [None]
  - ORAL INTAKE REDUCED [None]
  - SEPSIS [None]
